FAERS Safety Report 16153827 (Version 3)
Quarter: 2019Q3

REPORT INFORMATION
  Report Type: Spontaneous
  Country: US (occurrence: US)
  Receive Date: 20190403
  Receipt Date: 20190705
  Transmission Date: 20191004
  Serious: No
  Sender: FDA-Public Use
  Company Number: US-ASTRAZENECA-2019SE38843

PATIENT
  Sex: Female
  Weight: 67.6 kg

DRUGS (4)
  1. PULMICORT FLEXHALER [Suspect]
     Active Substance: BUDESONIDE
     Indication: ASTHMA
     Dosage: 2 PUFFS TWICE A DAY
     Route: 055
     Dates: start: 201902
  2. ADVAIR HFA [Concomitant]
     Active Substance: FLUTICASONE PROPIONATE\SALMETEROL XINAFOATE
  3. LYRICA [Concomitant]
     Active Substance: PREGABALIN
  4. CAPSAICIN. [Concomitant]
     Active Substance: CAPSAICIN

REACTIONS (4)
  - Herpes zoster [Unknown]
  - Device failure [Unknown]
  - Product use issue [Unknown]
  - Asthma [Unknown]
